FAERS Safety Report 8573007-0 (Version None)
Quarter: 2012Q3

REPORT INFORMATION
  Report Type: 
  Country: None (occurrence: None)
  Receive Date: 20120806
  Receipt Date: 20120730
  Transmission Date: 20120928
  Serious: Yes (Hospitalization)
  Sender: FDA-Public Use
  Company Number: US-PFIZER INC-2012185678

PATIENT
  Age: 86 Year
  Sex: Female

DRUGS (8)
  1. POTASSIUM [Concomitant]
     Dosage: UNK
  2. DILANTIN-125 [Suspect]
     Indication: SYNCOPE
     Dosage: 300 MG/DAY
  3. DIGOXIN [Concomitant]
     Dosage: 0.125 MG/DAY
  4. AMIODARONE HCL [Interacting]
     Indication: VENTRICULAR TACHYCARDIA
     Dosage: 600 MG/DAY
  5. AMIODARONE HCL [Interacting]
     Dosage: 400 MG/DAY
  6. FUROSEMIDE [Concomitant]
     Dosage: 80 MG/DAY
     Route: 048
  7. WARFARIN [Concomitant]
     Dosage: UNK
  8. DILANTIN-125 [Interacting]
     Indication: ELECTROENCEPHALOGRAM ABNORMAL

REACTIONS (7)
  - DRUG INTERACTION [None]
  - LETHARGY [None]
  - VERTIGO [None]
  - PROTHROMBIN TIME PROLONGED [None]
  - CARDIOACTIVE DRUG LEVEL INCREASED [None]
  - DRUG LEVEL INCREASED [None]
  - ATAXIA [None]
